FAERS Safety Report 6384537-4 (Version None)
Quarter: 2009Q3

REPORT INFORMATION
  Report Type: 
  Country: None (occurrence: None)
  Receive Date: 20090924
  Receipt Date: 20090219
  Transmission Date: 20100115
  Serious: No
  Sender: FDA-Public Use
  Company Number: US-CVT-090020

PATIENT
  Age: 94 Year
  Sex: Female
  Weight: 96.1 kg

DRUGS (14)
  1. RANEXA [Suspect]
     Indication: ANGINA PECTORIS
     Dosage: 500 MG, BID, ORAL
     Route: 048
     Dates: start: 20090212, end: 20090216
  2. PAXIL [Concomitant]
  3. FUROSEMIDE /00032601/ (FUROSEMIDE) [Concomitant]
  4. CARVEDILOL [Concomitant]
  5. ISOSORBIDE MONONITRATE [Concomitant]
  6. GLIPIZIDE [Concomitant]
  7. LISINOPRIL /00894001/(LISINOPRIL) [Concomitant]
  8. METOCLOPRAMIDE /00041901/(METOCLOPRAMIDE) [Concomitant]
  9. ALLOPURINOL [Concomitant]
  10. TRICOR [Concomitant]
  11. PLAVIS (CLOPIDOGREL SULFATE) [Concomitant]
  12. PANTOPRAZOLE SODIUM [Concomitant]
  13. POTASSIUM /00031401/(POTASSIUM) [Concomitant]
  14. ASPIRIN [Concomitant]

REACTIONS (1)
  - URTICARIA [None]
